FAERS Safety Report 12649059 (Version 5)
Quarter: 2017Q2

REPORT INFORMATION
  Report Type: Report from Study
  Country: DE (occurrence: DE)
  Receive Date: 20160812
  Receipt Date: 20170606
  Transmission Date: 20170830
  Serious: Yes (Hospitalization)
  Sender: FDA-Public Use
  Company Number: PHHO2016DE011344

PATIENT
  Age: 55 Year
  Sex: Female
  Weight: 145 kg

DRUGS (5)
  1. VALDOXAN [Concomitant]
     Active Substance: AGOMELATINE
     Indication: PRODUCT USED FOR UNKNOWN INDICATION
     Dosage: 25 MG, QD
     Route: 065
     Dates: start: 20160416, end: 20160531
  2. FLUOXETIN [Concomitant]
     Active Substance: FLUOXETINE HYDROCHLORIDE
     Indication: PRODUCT USED FOR UNKNOWN INDICATION
     Dosage: 20 MG, QD
     Route: 065
     Dates: start: 20100416
  3. TRIMIPRAMINE [Concomitant]
     Active Substance: TRIMIPRAMINE
     Indication: PRODUCT USED FOR UNKNOWN INDICATION
     Dosage: 25 MG, QD
     Route: 065
     Dates: start: 20140724
  4. ACZ885 [Suspect]
     Active Substance: CANAKINUMAB
     Indication: PROPHYLAXIS
     Dosage: 300 MG, UNK
     Route: 058
     Dates: start: 20121108
  5. ATORVASTATIN [Concomitant]
     Active Substance: ATORVASTATIN
     Indication: PRODUCT USED FOR UNKNOWN INDICATION
     Route: 065

REACTIONS (3)
  - Generalised anxiety disorder [Not Recovered/Not Resolved]
  - Depression [Recovered/Resolved]
  - Pain [Not Recovered/Not Resolved]

NARRATIVE: CASE EVENT DATE: 20160512
